FAERS Safety Report 11282644 (Version 2)
Quarter: 2015Q3

REPORT INFORMATION
  Report Type: Spontaneous
  Country: BE (occurrence: BE)
  Receive Date: 20150720
  Receipt Date: 20150725
  Transmission Date: 20151125
  Serious: Yes (Hospitalization)
  Sender: FDA-Public Use
  Company Number: PHHY2015BE083613

PATIENT
  Age: 58 Year
  Sex: Female
  Weight: 64 kg

DRUGS (9)
  1. NOREPINEPHRINE [Suspect]
     Active Substance: NOREPINEPHRINE\NOREPINEPHRINE BITARTRATE
     Dosage: 2 UG/KG/MIN
     Route: 065
  2. INSULIN [Suspect]
     Active Substance: INSULIN NOS
     Indication: HYPERGLYCAEMIA
     Dosage: 1 U/KG
     Route: 040
  3. INSULIN [Suspect]
     Active Substance: INSULIN NOS
     Dosage: 2 U/KG/H
  4. METHYLENE BLUE. [Suspect]
     Active Substance: METHYLENE BLUE
     Indication: VASOPLEGIA SYNDROME
     Dosage: 1 MG/KG, UNK
     Route: 041
  5. INSULIN [Suspect]
     Active Substance: INSULIN NOS
     Indication: DIABETES MELLITUS
     Dosage: 2 UKG, (CONTINUOUS INFUSION OF INCREASING DOSES UP TO 2 U/KG/HOURS)
     Route: 041
  6. AMLODIPINE [Suspect]
     Active Substance: AMLODIPINE BESYLATE
     Indication: HYPERTENSION
     Dosage: 480MG/3680MG
     Route: 048
  7. CALCIUM [Suspect]
     Active Substance: CALCIUM
     Indication: VASOPLEGIA SYNDROME
     Dosage: UNK
     Route: 042
  8. CALCIUM [Suspect]
     Active Substance: CALCIUM
     Indication: BLOOD PRESSURE ABNORMAL
  9. NOREPINEPHRINE [Suspect]
     Active Substance: NOREPINEPHRINE\NOREPINEPHRINE BITARTRATE
     Indication: HYPOTENSION
     Route: 065

REACTIONS (13)
  - Hypotension [Unknown]
  - Hyperglycaemia [Recovered/Resolved]
  - Vascular resistance systemic decreased [Recovered/Resolved]
  - Vasoplegia syndrome [Recovered/Resolved]
  - Drug ineffective [Unknown]
  - Intentional overdose [Unknown]
  - Metabolic acidosis [Recovered/Resolved]
  - Blood lactic acid increased [Recovered/Resolved]
  - Hyperdynamic left ventricle [Recovered/Resolved]
  - Toxicity to various agents [Unknown]
  - Distributive shock [Recovered/Resolved]
  - Electrocardiogram QT prolonged [Recovered/Resolved]
  - Cardiac index increased [Recovered/Resolved]
